FAERS Safety Report 25264554 (Version 2)
Quarter: 2025Q2

REPORT INFORMATION
  Report Type: Spontaneous
  Country: DE (occurrence: DE)
  Receive Date: 20250502
  Receipt Date: 20250625
  Transmission Date: 20250717
  Serious: Yes (Other)
  Sender: TEVA
  Company Number: DE-TEVA-VS-3326404

PATIENT
  Age: 89 Year
  Sex: Male

DRUGS (3)
  1. FUROSEMIDE [Suspect]
     Active Substance: FUROSEMIDE
     Indication: Product used for unknown indication
     Dosage: 1 - 1/2 - 0 - 0
     Route: 065
  2. NOVALGIN (METAMIZOLE SODIUM) [Suspect]
     Active Substance: METAMIZOLE SODIUM
     Indication: Procedural pain
     Route: 065
  3. SPIRONOLACTONE [Suspect]
     Active Substance: SPIRONOLACTONE
     Indication: Product used for unknown indication
     Dosage: 25 MG = 1/2- 1/2 - 0 - 0
     Route: 065

REACTIONS (4)
  - Ascites [Recovered/Resolved]
  - Limb operation [Unknown]
  - Weight decreased [Unknown]
  - Oedema peripheral [Recovered/Resolved]
